FAERS Safety Report 11586955 (Version 2)
Quarter: 2016Q1

REPORT INFORMATION
  Report Type: Spontaneous
  Country: US (occurrence: US)
  Receive Date: 20151001
  Receipt Date: 20160317
  Transmission Date: 20160525
  Serious: Yes (Hospitalization, Other)
  Sender: FDA-Public Use
  Company Number: US-009507513-1510USA000575

PATIENT
  Sex: Male
  Weight: 120.18 kg

DRUGS (6)
  1. JANUVIA [Suspect]
     Active Substance: SITAGLIPTIN PHOSPHATE
     Indication: TYPE 2 DIABETES MELLITUS
     Dosage: 100 MG, QD
     Route: 048
     Dates: start: 20080530, end: 20100701
  2. CYANOCOBALAMIN. [Concomitant]
     Active Substance: CYANOCOBALAMIN
     Indication: ROUTINE HEALTH MAINTENANCE
     Dosage: UNK
     Dates: start: 2008
  3. JANUVIA [Suspect]
     Active Substance: SITAGLIPTIN PHOSPHATE
     Dosage: 50 MG, UNK
     Route: 048
  4. NIACINAMIDE [Concomitant]
     Active Substance: NIACINAMIDE
     Indication: ROUTINE HEALTH MAINTENANCE
     Dosage: UNK
     Dates: start: 2008
  5. VITAMINS (UNSPECIFIED) [Concomitant]
     Active Substance: VITAMINS
     Indication: ROUTINE HEALTH MAINTENANCE
     Dosage: UNK
     Dates: start: 2008
  6. PACKERA AUREA [Concomitant]
     Indication: CONSTIPATION PROPHYLAXIS
     Dosage: UNK
     Dates: start: 2006, end: 201602

REACTIONS (32)
  - Blood pressure inadequately controlled [Unknown]
  - Large intestine polyp [Unknown]
  - Musculoskeletal pain [Not Recovered/Not Resolved]
  - Abdominal pain upper [Unknown]
  - Constipation [Not Recovered/Not Resolved]
  - Tachycardia [Unknown]
  - Gastrointestinal haemorrhage [Unknown]
  - Dizziness [Unknown]
  - Diverticulum intestinal [Unknown]
  - Gastrooesophageal reflux disease [Unknown]
  - Pancreatitis chronic [Not Recovered/Not Resolved]
  - Nephrolithiasis [Unknown]
  - Hyperlipidaemia [Unknown]
  - Presyncope [Unknown]
  - Vomiting [Unknown]
  - Adenocarcinoma pancreas [Unknown]
  - Anxiety [Unknown]
  - Nausea [Unknown]
  - Pseudocyst [Recovered/Resolved]
  - Pancreatic carcinoma recurrent [Unknown]
  - Metastases to lung [Unknown]
  - Hyperhidrosis [Unknown]
  - Pyrexia [Unknown]
  - Tremor [Unknown]
  - Sleep apnoea syndrome [Unknown]
  - Myalgia [Unknown]
  - Back pain [Not Recovered/Not Resolved]
  - Dyspnoea [Unknown]
  - Hypomagnesaemia [Unknown]
  - Lumbar spinal stenosis [Unknown]
  - Hypertension [Unknown]
  - Depression [Unknown]

NARRATIVE: CASE EVENT DATE: 201003
